FAERS Safety Report 8272439-8 (Version None)
Quarter: 2012Q2

REPORT INFORMATION
  Report Type: 
  Country: None (occurrence: None)
  Receive Date: 20120410
  Receipt Date: 20120329
  Transmission Date: 20120825
  Serious: Yes (Other)
  Sender: FDA-Public Use
  Company Number: US-BRISTOL-MYERS SQUIBB COMPANY-16486391

PATIENT
  Sex: Female

DRUGS (2)
  1. VIIBRYD [Suspect]
  2. ABILIFY [Suspect]
     Indication: DEPRESSION
     Dates: start: 20120307

REACTIONS (4)
  - ERYTHEMA [None]
  - PSYCHOTIC DISORDER [None]
  - SKIN BURNING SENSATION [None]
  - HALLUCINATION [None]
